FAERS Safety Report 18186827 (Version 6)
Quarter: 2021Q2

REPORT INFORMATION
  Report Type: Spontaneous
  Country: US (occurrence: US)
  Receive Date: 20200824
  Receipt Date: 20210510
  Transmission Date: 20210717
  Serious: No
  Sender: FDA-Public Use
  Company Number: US-PFIZER INC-2020326780

PATIENT
  Age: 83 Year
  Sex: Female

DRUGS (12)
  1. AMIODARONE [Concomitant]
     Active Substance: AMIODARONE
  2. POTASSIUM CHLORIDE. [Concomitant]
     Active Substance: POTASSIUM CHLORIDE
  3. ALBUTEROL HFA [Concomitant]
     Active Substance: ALBUTEROL SULFATE
  4. IBRANCE [Suspect]
     Active Substance: PALBOCICLIB
     Indication: BREAST CANCER FEMALE
     Dosage: 125 MG, CYCLIC(DAILY FOR 21 DAYS OFF 7 DAYS)
     Dates: start: 20190205, end: 20210419
  5. DULOXETINE. [Concomitant]
     Active Substance: DULOXETINE
  6. CEFDINIR. [Concomitant]
     Active Substance: CEFDINIR
  7. LISINOPRIL. [Concomitant]
     Active Substance: LISINOPRIL
  8. BUMEX [Concomitant]
     Active Substance: BUMETANIDE
  9. LETROZOLE. [Concomitant]
     Active Substance: LETROZOLE
  10. HYDRALAZINE [Concomitant]
     Active Substance: HYDRALAZINE HYDROCHLORIDE
  11. LEVOTHYROXINE. [Concomitant]
     Active Substance: LEVOTHYROXINE
  12. ELIQUIS [Concomitant]
     Active Substance: APIXABAN

REACTIONS (4)
  - Stomatitis [Unknown]
  - Skin odour abnormal [Not Recovered/Not Resolved]
  - Cough [Not Recovered/Not Resolved]
  - Lip exfoliation [Unknown]

NARRATIVE: CASE EVENT DATE: 2020
